FAERS Safety Report 10064926 (Version 1)
Quarter: 2014Q2

REPORT INFORMATION
  Report Type: Spontaneous
  Country: US (occurrence: US)
  Receive Date: 20140408
  Receipt Date: 20140408
  Transmission Date: 20141212
  Serious: Yes (Other)
  Sender: FDA-Public Use
  Company Number: US-TEVA-474337USA

PATIENT
  Age: 35 Year
  Sex: Female
  Weight: 97.16 kg

DRUGS (2)
  1. PLAN B ONE-STEP [Suspect]
     Indication: POST COITAL CONTRACEPTION
     Dosage: 1.5 MILLIGRAM DAILY;
     Route: 048
     Dates: start: 20140315, end: 20140315
  2. LISINOPRIL/HCTZ [Concomitant]
     Indication: HYPERTENSION
     Dosage: 10/12.5 MILLIGRAM
     Route: 048

REACTIONS (3)
  - Pregnancy after post coital contraception [Unknown]
  - Drug ineffective [Unknown]
  - Menstruation irregular [Not Recovered/Not Resolved]
